FAERS Safety Report 6750639-3 (Version None)
Quarter: 2010Q2

REPORT INFORMATION
  Report Type: 
  Country: None (occurrence: None)
  Receive Date: 20100602
  Receipt Date: 20100525
  Transmission Date: 20101027
  Serious: Yes (Other)
  Sender: FDA-Public Use
  Company Number: US-BIOGENIDEC-2010BI002299

PATIENT
  Age: 45 Year
  Sex: Female

DRUGS (12)
  1. TYSABRI [Suspect]
     Indication: MULTIPLE SCLEROSIS
     Route: 042
     Dates: start: 20091217, end: 20100114
  2. CALCIUM WITH VITAMIN D [Concomitant]
  3. DOCUSATE SODIUM [Concomitant]
  4. FOLIC ACID [Concomitant]
  5. LIPITOR [Concomitant]
  6. MIDODRINE HYDROCHLORIDE [Concomitant]
  7. PROZAC [Concomitant]
  8. TIZANIDINE [Concomitant]
  9. TOPAMAX [Concomitant]
  10. WELLBUTRIN SR [Concomitant]
  11. ZOMIG [Concomitant]
  12. VITAMIN B-12 [Concomitant]
     Route: 048

REACTIONS (3)
  - DEEP VEIN THROMBOSIS [None]
  - GAIT DISTURBANCE [None]
  - MUSCLE SPASTICITY [None]
